FAERS Safety Report 15589748 (Version 1)
Quarter: 2018Q4

REPORT INFORMATION
  Report Type: Spontaneous
  Country: JP (occurrence: JP)
  Receive Date: 20181106
  Receipt Date: 20181106
  Transmission Date: 20190205
  Serious: Yes (Other)
  Sender: FDA-Public Use
  Company Number: JP-ROCHE-2204240

PATIENT
  Age: 66 Year
  Sex: Male

DRUGS (2)
  1. XELODA [Suspect]
     Active Substance: CAPECITABINE
     Indication: RECTAL CANCER
     Dosage: 2 WEEKS
     Route: 048
     Dates: start: 20180815
  2. XELODA [Suspect]
     Active Substance: CAPECITABINE
     Dosage: 2 WEEKS
     Route: 048
     Dates: start: 201809

REACTIONS (2)
  - Intestinal obstruction [Unknown]
  - Ileus [Unknown]

NARRATIVE: CASE EVENT DATE: 20181018
